FAERS Safety Report 8571778-0 (Version None)
Quarter: 2012Q3

REPORT INFORMATION
  Report Type: 
  Country: None (occurrence: None)
  Receive Date: 20120806
  Receipt Date: 20120727
  Transmission Date: 20120928
  Serious: Yes (Other)
  Sender: FDA-Public Use
  Company Number: AR-JNJFOC-20120703326

PATIENT

DRUGS (2)
  1. LEVOFLOXACIN [Suspect]
     Indication: TUBERCULOSIS
     Route: 065
  2. ANTIRETROVIRAL [Suspect]
     Indication: HIV INFECTION
     Route: 065

REACTIONS (7)
  - DIZZINESS [None]
  - TENDONITIS [None]
  - ABDOMINAL DISCOMFORT [None]
  - ARTHROPATHY [None]
  - HEADACHE [None]
  - HAEMOLYSIS [None]
  - DIARRHOEA [None]
